FAERS Safety Report 9768622 (Version 1)
Quarter: 2013Q4

REPORT INFORMATION
  Report Type: Report from Study
  Country: GB (occurrence: GB)
  Receive Date: 20131218
  Receipt Date: 20131218
  Transmission Date: 20140711
  Serious: Yes (Hospitalization)
  Sender: FDA-Public Use
  Company Number: GB-PFIZER INC-2013357749

PATIENT
  Sex: Male

DRUGS (4)
  1. RAMIPRIL [Suspect]
     Dosage: UNK
     Route: 048
  2. OMEPRAZOLE [Suspect]
     Dosage: UNK
     Route: 065
  3. BRILIQUE [Suspect]
     Dosage: UNK
     Route: 048
  4. ASPIRIN [Suspect]
     Dosage: UNK
     Route: 065

REACTIONS (9)
  - Viral infection [Recovered/Resolved]
  - Back disorder [Recovered/Resolved]
  - Nasopharyngitis [Recovered/Resolved]
  - Malaise [Recovered/Resolved]
  - Adverse reaction [Recovered/Resolved]
  - Cough [Recovered/Resolved]
  - Flatulence [Recovered/Resolved]
  - Abdominal distension [Recovered/Resolved]
  - Abdominal discomfort [Recovered/Resolved]
